FAERS Safety Report 13853209 (Version 1)
Quarter: 2017Q3

REPORT INFORMATION
  Report Type: Spontaneous
  Country: US (occurrence: US)
  Receive Date: 20170809
  Receipt Date: 20170809
  Transmission Date: 20171127
  Serious: Yes (Other)
  Sender: FDA-Public Use
  Company Number: None

PATIENT
  Age: 59 Year
  Sex: Male
  Weight: 97.65 kg

DRUGS (9)
  1. EPCLUSA [Suspect]
     Active Substance: SOFOSBUVIR\VELPATASVIR
     Indication: CHRONIC HEPATITIS C
     Route: 048
     Dates: start: 20170630, end: 20170731
  2. LINZESS [Concomitant]
     Active Substance: LINACLOTIDE
  3. ATORVASTATIN [Concomitant]
     Active Substance: ATORVASTATIN
  4. PAXIL [Concomitant]
     Active Substance: PAROXETINE HYDROCHLORIDE
  5. METOPROLOL. [Concomitant]
     Active Substance: METOPROLOL
  6. ASPIRIN. [Concomitant]
     Active Substance: ASPIRIN
  7. LISINOPRIL. [Concomitant]
     Active Substance: LISINOPRIL
  8. PLAVIX [Concomitant]
     Active Substance: CLOPIDOGREL BISULFATE
  9. OXYCODONE [Concomitant]
     Active Substance: OXYCODONE

REACTIONS (8)
  - Eating disorder [None]
  - Hypertension [None]
  - Chest pain [None]
  - Delirium [None]
  - Mental status changes [None]
  - Drug dose omission [None]
  - Insomnia [None]
  - Drug interaction [None]

NARRATIVE: CASE EVENT DATE: 20170802
